FAERS Safety Report 23882250 (Version 2)
Quarter: 2024Q2

REPORT INFORMATION
  Report Type: Spontaneous
  Country: US (occurrence: US)
  Receive Date: 20240522
  Receipt Date: 20240612
  Transmission Date: 20240716
  Serious: Yes (Hospitalization)
  Sender: FDA-Public Use
  Company Number: US-BRISTOL-MYERS SQUIBB COMPANY-2024-078672

PATIENT
  Age: 85 Year
  Sex: Female

DRUGS (5)
  1. LENALIDOMIDE [Suspect]
     Active Substance: LENALIDOMIDE
     Indication: Plasma cell myeloma
     Dosage: DAILY X 21 DAYS ON AND 7 DAYS OFF
     Route: 048
     Dates: start: 20210701
  2. ELIQUIS [Concomitant]
     Active Substance: APIXABAN
     Dosage: ONGOING
     Route: 048
     Dates: start: 20210629
  3. DEXAMETHASONE [Concomitant]
     Active Substance: DEXAMETHASONE
     Dosage: ONGOING
     Route: 048
     Dates: start: 20210625
  4. FUROSEMIDE [Concomitant]
     Active Substance: FUROSEMIDE
     Dosage: ONGOING
     Route: 048
     Dates: start: 20210629
  5. IRON [Concomitant]
     Active Substance: IRON
     Dosage: ONGOING
     Route: 048
     Dates: start: 20210629

REACTIONS (2)
  - Haemoglobin decreased [Recovering/Resolving]
  - Fall [Recovering/Resolving]

NARRATIVE: CASE EVENT DATE: 20240423
